FAERS Safety Report 5406967-7 (Version None)
Quarter: 2007Q3

REPORT INFORMATION
  Report Type: 
  Country: None (occurrence: None)
  Receive Date: 20070702
  Receipt Date: 20070717
  Transmission Date: 20080115
  Serious: Yes (Hospitalization)
  Sender: FDA-Public Use
  Company Number: 003#3#2007-00132

PATIENT
  Age: 89 Year
  Sex: Female

DRUGS (9)
  1. ISOSORBIDE MONONITRATE [Suspect]
  2. TOLTERODINE TARTRATE [Suspect]
  3. CO-AMILOFRUSE (AMILORIDE HYDROCHLORIDE, FUROSEMIDE) [Suspect]
  4. ALLOPURINOL [Concomitant]
  5. ASPIRIN [Concomitant]
  6. CITALOPRAM HYDROBROMIDE [Concomitant]
  7. GABAPENTIN [Concomitant]
  8. LEVOTHYROXINE SODIUM [Concomitant]
  9. METFORMIN HCL [Concomitant]

REACTIONS (3)
  - FALL [None]
  - MICROCYTIC ANAEMIA [None]
  - ORTHOSTATIC HYPOTENSION [None]
